FAERS Safety Report 14068530 (Version 1)
Quarter: 2017Q4

REPORT INFORMATION
  Report Type: Spontaneous
  Country: US (occurrence: US)
  Receive Date: 20171010
  Receipt Date: 20171010
  Transmission Date: 20180321
  Serious: Yes (Disabling)
  Sender: FDA-Public Use
  Company Number: None

PATIENT
  Age: 11 Year
  Sex: Male
  Weight: 27.45 kg

DRUGS (2)
  1. LEVALBUTRAOL [Concomitant]
  2. MONTELUKAST SODIUM. [Suspect]
     Active Substance: MONTELUKAST SODIUM
     Indication: ASTHMA
     Dosage: ?          QUANTITY:30 TABLET(S);?
     Route: 048
     Dates: start: 20161115, end: 20170911

REACTIONS (6)
  - Sleep terror [None]
  - Insomnia [None]
  - Depression [None]
  - Anxiety [None]
  - Hallucinations, mixed [None]
  - Therapy cessation [None]

NARRATIVE: CASE EVENT DATE: 20170911
